FAERS Safety Report 9164127 (Version 1)
Quarter: 2013Q1

REPORT INFORMATION
  Report Type: Spontaneous
  Country: US (occurrence: US)
  Receive Date: 20130315
  Receipt Date: 20130315
  Transmission Date: 20140127
  Serious: Yes (Other)
  Sender: FDA-Public Use
  Company Number: US-AMGEN-USASP2013015470

PATIENT
  Age: 76 Year
  Sex: Female

DRUGS (7)
  1. PROLIA [Suspect]
     Indication: OSTEOPOROSIS POSTMENOPAUSAL
     Dosage: 60 MG, UNK
     Dates: start: 201209
  2. METOPROLOL [Concomitant]
     Dosage: 25 MG, QD
  3. TRIAMTERENE/HCTZ [Concomitant]
     Dosage: 25 MG, QD
  4. CALCIUM [Concomitant]
  5. VITAMIN D /00107901/ [Concomitant]
  6. FISH OIL [Concomitant]
  7. NAPROSYN /00256201/ [Concomitant]

REACTIONS (1)
  - Psoriasis [Not Recovered/Not Resolved]
